FAERS Safety Report 21265380 (Version 1)
Quarter: 2022Q3

REPORT INFORMATION
  Report Type: Spontaneous
  Country: US (occurrence: None)
  Receive Date: 20220826
  Receipt Date: 20220826
  Transmission Date: 20221026
  Serious: Yes (Disabling)
  Sender: FDA-Public Use
  Company Number: None

PATIENT
  Age: 40 Year
  Sex: Male
  Weight: 132.75 kg

DRUGS (8)
  1. CHLORTHALIDONE [Suspect]
     Active Substance: CHLORTHALIDONE
     Indication: Hypertension
     Dosage: OTHER QUANTITY : 1 TABLET(S);?FREQUENCY : DAILY;?
     Route: 048
     Dates: start: 20220117, end: 20220815
  2. ARMODAFINIL [Concomitant]
     Active Substance: ARMODAFINIL
  3. LOSARTAN [Concomitant]
     Active Substance: LOSARTAN
  4. AMLODIPINE [Concomitant]
     Active Substance: AMLODIPINE BESYLATE
  5. CRESTOR [Concomitant]
     Active Substance: ROSUVASTATIN CALCIUM
  6. VITAMIN D3 [Concomitant]
     Active Substance: CHOLECALCIFEROL
  7. MULTI-VITAMIN [Concomitant]
     Active Substance: .ALPHA.-TOCOPHEROL ACETATE, DL-\ASCORBIC ACID\CYANOCOBALAMIN\FLUORIDE ION\FOLIC ACID\NIACIN\PYRIDOXI
  8. PROBIOTICS NOS [Concomitant]
     Active Substance: PROBIOTICS NOS

REACTIONS (14)
  - Visual impairment [None]
  - Vision blurred [None]
  - Diplopia [None]
  - Photophobia [None]
  - Astigmatism [None]
  - Lacrimation increased [None]
  - Ocular discomfort [None]
  - Eyeglasses therapy [None]
  - Glycosylated haemoglobin increased [None]
  - Vision blurred [None]
  - Eye irritation [None]
  - Drug ineffective [None]
  - Magnetic resonance imaging abnormal [None]
  - Eye pain [None]

NARRATIVE: CASE EVENT DATE: 20220626
